FAERS Safety Report 8894867 (Version 1)
Quarter: 2012Q4

REPORT INFORMATION
  Report Type: 
  Country: US (occurrence: US)
  Receive Date: 20121108
  Receipt Date: 20121108
  Transmission Date: 20130627
  Serious: No
  Sender: FDA-Public Use
  Company Number: US-B.I. PHARMACEUTICALS,INC./RIDGEFIELD-2012-BP-27332BP

PATIENT
  Age: 99 Year
  Sex: Female

DRUGS (3)
  1. SPIRIVA [Suspect]
     Indication: CHRONIC OBSTRUCTIVE PULMONARY DISEASE
     Dosage: 18 mcg
     Route: 055
  2. SPIRIVA [Suspect]
     Route: 048
     Dates: start: 20121106, end: 20121106
  3. VITAMINS [Concomitant]

REACTIONS (1)
  - Incorrect route of drug administration [Recovered/Resolved]
